FAERS Safety Report 9827263 (Version 1)
Quarter: 2013Q4

REPORT INFORMATION
  Report Type: Spontaneous
  Country: US (occurrence: None)
  Receive Date: 20131112
  Receipt Date: 20131112
  Transmission Date: 20140711
  Serious: Yes (Other)
  Sender: FDA-Public Use
  Company Number: US-013201

PATIENT
  Age: 36 Year
  Sex: Female
  Weight: 99.79 kg

DRUGS (9)
  1. PICO-SALAX [Suspect]
     Indication: BOWEL PREPARATION
     Dosage: (TOOK FIRST PACKET 5:30PM AND TOOK SECOND PACK AT 8 AM NEXT DAY)
     Dates: start: 20130930, end: 20131001
  2. DULCOLAX [Concomitant]
  3. XANAX [Concomitant]
  4. BENTYL [Concomitant]
  5. PHENERGAN [Concomitant]
  6. FENTANYL [Concomitant]
  7. ALBUTEROL [Concomitant]
  8. ANTIDIARRHEAL [Concomitant]
  9. ZANAFLEX [Concomitant]

REACTIONS (3)
  - Renal pain [None]
  - Abdominal distension [None]
  - Fluid overload [None]
